FAERS Safety Report 7243272-0 (Version None)
Quarter: 2011Q1

REPORT INFORMATION
  Report Type: 
  Country: None (occurrence: None)
  Receive Date: 20110125
  Receipt Date: 20110117
  Transmission Date: 20110831
  Serious: Yes (Death)
  Sender: FDA-Public Use
  Company Number: AU-ROCHE-754347

PATIENT
  Age: 33 Year
  Sex: Male

DRUGS (6)
  1. METHADONE HCL [Suspect]
     Route: 065
  2. MIRTAZAPINE [Suspect]
     Route: 065
  3. OXYCODONE HYDROCHLORIDE [Suspect]
     Route: 065
  4. ALCOHOL [Suspect]
     Route: 065
  5. DIAZEPAM [Suspect]
     Route: 065
  6. TRAMADOL HCL [Suspect]
     Route: 065

REACTIONS (2)
  - DRUG INTERACTION [None]
  - DEATH [None]
